FAERS Safety Report 6529439-5 (Version None)
Quarter: 2010Q1

REPORT INFORMATION
  Report Type: 
  Country: None (occurrence: None)
  Receive Date: 20100107
  Receipt Date: 20100104
  Transmission Date: 20100710
  Serious: Yes (Hospitalization)
  Sender: FDA-Public Use
  Company Number: DE-ASTRAZENECA-2010SE00148

PATIENT
  Age: 74 Year
  Sex: Female
  Weight: 82 kg

DRUGS (7)
  1. SEROQUEL [Suspect]
     Indication: SCHIZOPHRENIA
     Route: 048
     Dates: start: 20090201
  2. RAMIPRIL [Suspect]
     Indication: HYPERTENSION
     Route: 048
  3. TREVILOR RETARD [Suspect]
     Indication: DEPRESSION
     Route: 048
     Dates: start: 20090201
  4. BISOPROLOL [Suspect]
     Indication: HYPERTENSION
     Route: 048
  5. ASPIRIN [Suspect]
     Indication: CORONARY ARTERY DISEASE
     Route: 048
     Dates: start: 19980101
  6. SIMVASTAD [Suspect]
     Indication: HYPERCHOLESTEROLAEMIA
     Route: 048
  7. ZOP [Concomitant]
     Indication: SLEEP DISORDER
     Route: 048
     Dates: start: 20070101

REACTIONS (2)
  - HEPATIC ENZYME INCREASED [None]
  - HYPERGLYCAEMIA [None]
